FAERS Safety Report 5363915-6 (Version None)
Quarter: 2007Q2

REPORT INFORMATION
  Report Type: 
  Country: None (occurrence: None)
  Receive Date: 20070620
  Receipt Date: 20070608
  Transmission Date: 20071010
  Serious: Yes (Hospitalization, Other)
  Sender: FDA-Public Use
  Company Number: IE-PFIZER INC-2007036612

PATIENT
  Age: 46 Year
  Sex: Female
  Weight: 59.42 kg

DRUGS (1)
  1. LIPITOR [Suspect]
     Indication: BLOOD CHOLESTEROL INCREASED
     Route: 048

REACTIONS (3)
  - HYPERCALCAEMIA [None]
  - OSTEOPOROSIS [None]
  - PARATHYROID TUMOUR [None]
